FAERS Safety Report 18082367 (Version 2)
Quarter: 2021Q2

REPORT INFORMATION
  Report Type: Spontaneous
  Country: US (occurrence: US)
  Receive Date: 20200729
  Receipt Date: 20210617
  Transmission Date: 20210717
  Serious: Yes (Other)
  Sender: FDA-Public Use
  Company Number: US-SA-2020SA194219

PATIENT
  Age: 55 Year
  Sex: Male

DRUGS (1)
  1. ZANTAC [Suspect]
     Active Substance: RANITIDINE HYDROCHLORIDE
     Indication: HYPERCHLORHYDRIA
     Dosage: QW
     Dates: start: 201001, end: 202001

REACTIONS (3)
  - Nasal neoplasm [Unknown]
  - Oesophageal carcinoma [Unknown]
  - Throat cancer [Unknown]

NARRATIVE: CASE EVENT DATE: 201911
